FAERS Safety Report 23486910 (Version 2)
Quarter: 2025Q2

REPORT INFORMATION
  Report Type: Spontaneous
  Country: CO (occurrence: CO)
  Receive Date: 20240206
  Receipt Date: 20250602
  Transmission Date: 20250716
  Serious: No
  Sender: PFIZER
  Company Number: CO-PFIZER INC-PV202400006604

PATIENT
  Sex: Male

DRUGS (1)
  1. GENOTROPIN [Suspect]
     Active Substance: SOMATROPIN

REACTIONS (1)
  - Product solubility abnormal [Unknown]
